FAERS Safety Report 4349315-6 (Version None)
Quarter: 2004Q2

REPORT INFORMATION
  Report Type: 
  Country: None (occurrence: None)
  Receive Date: 20040426
  Receipt Date: 20040415
  Transmission Date: 20050107
  Serious: Yes (Other)
  Sender: FDA-Public Use
  Company Number: 2004-03-1652

PATIENT
  Age: 32 Year
  Sex: Male

DRUGS (2)
  1. CLARITIN [Suspect]
     Indication: RHINITIS ALLERGIC
     Dosage: 1 TAB QD
  2. SALBUTAMOL SULPHATE [Concomitant]

REACTIONS (3)
  - HEPATITIS [None]
  - HEPATOMEGALY [None]
  - TRANSAMINASES INCREASED [None]
